FAERS Safety Report 5060288-3 (Version None)
Quarter: 2006Q3

REPORT INFORMATION
  Report Type: 
  Country: None (occurrence: None)
  Receive Date: 20060720
  Receipt Date: 20060705
  Transmission Date: 20061208
  Serious: Yes (Hospitalization)
  Sender: FDA-Public Use
  Company Number: PHBS2006JP10183

PATIENT
  Age: 54 Year
  Sex: Female

DRUGS (3)
  1. CYCLOSPORINE [Suspect]
     Indication: RENAL TRANSPLANT
     Dosage: 75 MG/D, ORAL
     Route: 048
     Dates: start: 19890101
  2. AZATHIOPRINE [Suspect]
     Indication: RENAL TRANSPLANT
     Dosage: 50 MG/D, ORAL
     Route: 048
     Dates: start: 19890101
  3. METHYLPREDNISOLONE [Suspect]
     Indication: RENAL TRANSPLANT
     Dosage: 8 MG, Q48H, ORAL
     Route: 048
     Dates: start: 19890101

REACTIONS (9)
  - BREAST MICROCALCIFICATION [None]
  - HERPES ZOSTER [None]
  - HYPERKERATOSIS [None]
  - INTRADUCTAL PAPILLOMA OF BREAST [None]
  - NIPPLE DISORDER [None]
  - PAGET'S DISEASE OF THE BREAST [None]
  - PNEUMOCYSTIS JIROVECI PNEUMONIA [None]
  - RASH [None]
  - SKIN PAPILLOMA [None]
